FAERS Safety Report 15258330 (Version 2)
Quarter: 2018Q3

REPORT INFORMATION
  Report Type: Spontaneous
  Country: AT (occurrence: AT)
  Receive Date: 20180809
  Receipt Date: 20180919
  Transmission Date: 20181010
  Serious: Yes (Life-Threatening)
  Sender: FDA-Public Use
  Company Number: AT-OCTA-FIB01318AT

PATIENT
  Age: 79 Year
  Sex: Female

DRUGS (3)
  1. FIBRYGA [Suspect]
     Active Substance: FIBRINOGEN HUMAN
     Indication: HYPOFIBRINOGENAEMIA
     Route: 042
     Dates: start: 20180725, end: 20180725
  2. SUFENTANIL [Concomitant]
     Active Substance: SUFENTANIL
     Indication: ANAESTHESIA
     Dates: start: 20180725, end: 20180725
  3. PROPOFOL. [Concomitant]
     Active Substance: PROPOFOL
     Indication: ANAESTHESIA
     Dates: start: 20170725, end: 20180725

REACTIONS (2)
  - Oxygen saturation decreased [Recovered/Resolved]
  - Blood pressure systolic decreased [Recovered/Resolved]

NARRATIVE: CASE EVENT DATE: 20180725
